FAERS Safety Report 22659957 (Version 1)
Quarter: 2023Q2

REPORT INFORMATION
  Report Type: Other
  Country: GB (occurrence: GB)
  Receive Date: 20230630
  Receipt Date: 20230630
  Transmission Date: 20230721
  Serious: Yes (Hospitalization, Disabling, Other)
  Sender: FDA-Public Use
  Company Number: GB-MHRA-MED-202306191621160240-ZMNHF

PATIENT

DRUGS (3)
  1. MOMETASONE FUROATE [Suspect]
     Active Substance: MOMETASONE FUROATE
     Indication: Eczema
     Dosage: UNK
     Route: 065
     Dates: start: 2016, end: 20230313
  2. HYDROCORTISONE [Suspect]
     Active Substance: HYDROCORTISONE
     Indication: Eczema
     Dosage: UNK
     Route: 065
     Dates: end: 20230313
  3. TACROLIMUS [Suspect]
     Active Substance: TACROLIMUS
     Indication: Eczema
     Dosage: UNK
     Route: 065
     Dates: end: 20230313

REACTIONS (18)
  - Topical steroid withdrawal reaction [Not Recovered/Not Resolved]
  - Bedridden [Unknown]
  - Eczema herpeticum [Unknown]
  - Dehydration [Unknown]
  - Constipation [Unknown]
  - Anxiety [Unknown]
  - Weight increased [Unknown]
  - Weight decreased [Unknown]
  - Menstrual disorder [Unknown]
  - Nasopharyngitis [Unknown]
  - Heart rate increased [Unknown]
  - Social problem [Unknown]
  - Impaired work ability [Unknown]
  - Skin haemorrhage [Unknown]
  - Generalised oedema [Unknown]
  - Erythema [Unknown]
  - Pain [Unknown]
  - Pruritus [Unknown]
